FAERS Safety Report 13769765 (Version 1)
Quarter: 2017Q3

REPORT INFORMATION
  Report Type: Spontaneous
  Country: NO (occurrence: NO)
  Receive Date: 20170719
  Receipt Date: 20170719
  Transmission Date: 20171127
  Serious: Yes (Death)
  Sender: FDA-Public Use
  Company Number: NO-LPDUSPRD-20170993

PATIENT
  Age: 23 Year
  Sex: Male

DRUGS (5)
  1. FERINJECT [Suspect]
     Active Substance: FERRIC CARBOXYMALTOSE
     Dosage: 500 MG
     Route: 042
     Dates: start: 20170322, end: 20170322
  2. SPIRIX [Concomitant]
     Active Substance: SPIRONOLACTONE
     Dosage: 25 MCG ONCE DAILY
     Route: 048
  3. ENTRESTO [Concomitant]
     Active Substance: SACUBITRIL\VALSARTAN
     Dosage: 97/103 MG TWICE DAILY
     Route: 048
  4. FURIX [Concomitant]
     Active Substance: FUROSEMIDE
     Dosage: 20 MCG
     Route: 048
  5. CARVEDILOL. [Concomitant]
     Active Substance: CARVEDILOL
     Dosage: 6.25 MCG(3.125MCG, TWICE DAIL)
     Route: 048

REACTIONS (4)
  - Off label use [Unknown]
  - Hemiparesis [Fatal]
  - Circulatory collapse [Fatal]
  - Dysarthria [Fatal]

NARRATIVE: CASE EVENT DATE: 20170323
